FAERS Safety Report 20279715 (Version 4)
Quarter: 2022Q1

REPORT INFORMATION
  Report Type: Other
  Country: CA (occurrence: None)
  Receive Date: 20220103
  Receipt Date: 20220131
  Transmission Date: 20220423
  Serious: Yes (Other)
  Sender: FDA-Public Use
  Company Number: CA-ROCHE-2988352

PATIENT
  Sex: Female

DRUGS (4)
  1. PERJETA [Suspect]
     Active Substance: PERTUZUMAB
     Indication: HER2 positive breast cancer
     Dosage: DRUG DOSE FIRST ADMINISTERED IS UNKNOWN MOREDOSAGEINFO IS NO PIR RECEIVED
     Route: 042
     Dates: start: 20210727, end: 2021
  2. PERJETA [Suspect]
     Active Substance: PERTUZUMAB
     Dosage: 1 EVERY 3 WEEKS
     Route: 042
     Dates: start: 20210817
  3. HERCEPTIN [Suspect]
     Active Substance: TRASTUZUMAB
     Indication: Product used for unknown indication
     Route: 065
  4. TYLENOL [Concomitant]
     Active Substance: ACETAMINOPHEN
     Indication: Premedication
     Dosage: DRUG DOSE FIRST ADMINISTERED IS 650 MG MILLIGRAM(S)
     Route: 048
     Dates: start: 20210817

REACTIONS (1)
  - Cardiac dysfunction [Unknown]
